FAERS Safety Report 6098331-5 (Version None)
Quarter: 2009Q1

REPORT INFORMATION
  Report Type: 
  Country: None (occurrence: None)
  Receive Date: 20090302
  Receipt Date: 20090219
  Transmission Date: 20090719
  Serious: Yes (Other)
  Sender: FDA-Public Use
  Company Number: BR-PFIZER INC-2009171235

PATIENT

DRUGS (1)
  1. ATORVASTATIN CALCIUM [Suspect]
     Indication: BLOOD CHOLESTEROL
     Dosage: 10 MG, 1X/DAY
     Route: 048

REACTIONS (2)
  - SURGERY [None]
  - THYROID OPERATION [None]
